FAERS Safety Report 10052171 (Version 1)
Quarter: 2014Q2

REPORT INFORMATION
  Report Type: Spontaneous
  Country: US (occurrence: US)
  Receive Date: 20140402
  Receipt Date: 20140402
  Transmission Date: 20141212
  Serious: No
  Sender: FDA-Public Use
  Company Number: US-US-EMD SERONO, INC.-7278599

PATIENT
  Sex: Female

DRUGS (1)
  1. REBIF [Suspect]
     Indication: PRODUCT USED FOR UNKNOWN INDICATION
     Route: 058

REACTIONS (6)
  - Trigeminal neuralgia [Unknown]
  - Skin infection [Unknown]
  - Influenza like illness [Unknown]
  - Injection site erythema [Unknown]
  - Injection site pain [Unknown]
  - Drug dose omission [Unknown]
